FAERS Safety Report 9736693 (Version 1)
Quarter: 2013Q4

REPORT INFORMATION
  Report Type: Spontaneous
  Country: US (occurrence: US)
  Receive Date: 20131206
  Receipt Date: 20131206
  Transmission Date: 20140711
  Serious: Yes (Hospitalization)
  Sender: FDA-Public Use
  Company Number: US-GILEAD-2009-0023447

PATIENT
  Sex: Female
  Weight: 108.86 kg

DRUGS (13)
  1. LETAIRIS [Suspect]
     Indication: PULMONARY ARTERIAL HYPERTENSION
     Route: 048
     Dates: start: 20090515
  2. LASIX [Concomitant]
  3. DYAZIDE [Concomitant]
  4. MOEXIPRIL HCL [Concomitant]
  5. ALBUTEROL [Concomitant]
  6. ADVAIR [Concomitant]
  7. PROAIR [Concomitant]
  8. OXYGEN [Concomitant]
  9. KLOR-CON M20 [Concomitant]
  10. TYLENOL [Concomitant]
  11. LIPITOR [Concomitant]
  12. ASPIRIN [Concomitant]
  13. IBUPROFEN [Concomitant]

REACTIONS (4)
  - Dyspnoea [Unknown]
  - Oedema peripheral [Not Recovered/Not Resolved]
  - Oropharyngeal pain [Unknown]
  - Headache [Not Recovered/Not Resolved]
